FAERS Safety Report 13450055 (Version 1)
Quarter: 2017Q2

REPORT INFORMATION
  Report Type: Spontaneous
  Country: US (occurrence: US)
  Receive Date: 20170417
  Receipt Date: 20170417
  Transmission Date: 20170830
  Serious: No
  Sender: FDA-Public Use
  Company Number: US-BION-20160571

PATIENT
  Age: 49 Year
  Sex: Female

DRUGS (1)
  1. ALEVE [Suspect]
     Active Substance: NAPROXEN SODIUM
     Route: 048
     Dates: start: 20160902, end: 20160905

REACTIONS (4)
  - Joint swelling [Unknown]
  - Fluid retention [Unknown]
  - Peripheral swelling [Recovered/Resolved]
  - Product use in unapproved indication [Unknown]
